FAERS Safety Report 8008255-1 (Version None)
Quarter: 2011Q4

REPORT INFORMATION
  Report Type: 
  Country: None (occurrence: None)
  Receive Date: 20111227
  Receipt Date: 20111214
  Transmission Date: 20120403
  Serious: Yes (Hospitalization)
  Sender: FDA-Public Use
  Company Number: FR-SANOFI-AVENTIS-200911460FR

PATIENT
  Age: 53 Year
  Sex: Female

DRUGS (13)
  1. LASIX [Suspect]
  2. XANAX [Suspect]
     Route: 048
  3. IRBESARTAN [Suspect]
     Route: 048
  4. PREVISCAN [Suspect]
     Dosage: DOSE UNIT: 20 MG
     Route: 048
  5. LACTULOSE [Suspect]
     Route: 048
  6. FENOFIBRATE [Concomitant]
  7. IMOVANE [Suspect]
     Route: 048
  8. GLUCOPHAGE [Suspect]
     Dosage: DOSE UNIT: 850 MG
     Route: 048
  9. PRAVASTATIN [Suspect]
     Route: 048
  10. ACETAMINOPHEN W/ PROPOXYPHENE HCL [Suspect]
     Route: 048
  11. PAROXETINE HCL [Suspect]
     Indication: DEPRESSION
     Route: 048
     Dates: end: 20040101
  12. MEDIATOR [Suspect]
     Dosage: DOSE UNIT: 150 MG
     Route: 048
     Dates: start: 20020101, end: 20050321
  13. POTASSIUM CHLORIDE [Suspect]
     Route: 048

REACTIONS (4)
  - PULMONARY ARTERIAL HYPERTENSION [None]
  - MITRAL VALVE INCOMPETENCE [None]
  - AORTIC VALVE INCOMPETENCE [None]
  - CARDIAC VALVE DISEASE [None]
